FAERS Safety Report 5632502-4 (Version None)
Quarter: 2008Q1

REPORT INFORMATION
  Report Type: 
  Country: None (occurrence: None)
  Receive Date: 20080220
  Receipt Date: 20080206
  Transmission Date: 20080703
  Serious: Yes (Hospitalization, Other)
  Sender: FDA-Public Use
  Company Number: US-ELI_LILLY_AND_COMPANY-US200802001385

PATIENT
  Sex: Female
  Weight: 111.57 kg

DRUGS (11)
  1. LISPRO 25LIS75NPL [Suspect]
     Dosage: 30 IU, EACH MORNING
     Dates: start: 20060830
  2. LISPRO 25LIS75NPL [Suspect]
     Dosage: 20 IU, EACH EVENING
     Dates: start: 20060830
  3. GLYBURIDE AND METFORMIN HCL [Concomitant]
     Indication: TYPE 2 DIABETES MELLITUS
  4. QUINAPRIL HCL [Concomitant]
     Indication: HYPERTENSION
  5. DIOVAN HCT [Concomitant]
     Indication: HYPERTENSION
  6. COREG [Concomitant]
     Indication: HYPERTENSION
  7. PREVACID [Concomitant]
     Indication: GASTRITIS
  8. CYCLOBENZAPRINE HCL [Concomitant]
     Indication: RADICULOPATHY
  9. NAPROXEN [Concomitant]
     Indication: RADICULOPATHY
     Dosage: UNK, UNK
  10. AMLODIPINE [Concomitant]
     Indication: HYPERTENSION
     Dosage: UNK, UNK
  11. LIPITOR [Concomitant]
     Indication: DYSLIPIDAEMIA

REACTIONS (6)
  - ANAEMIA [None]
  - EPISTAXIS [None]
  - GASTROINTESTINAL HAEMORRHAGE [None]
  - HYPERTENSION [None]
  - PLATELET COUNT INCREASED [None]
  - RECTAL HAEMORRHAGE [None]
